FAERS Safety Report 7345316-4 (Version None)
Quarter: 2011Q1

REPORT INFORMATION
  Report Type: 
  Country: None (occurrence: None)
  Receive Date: 20110310
  Receipt Date: 20110307
  Transmission Date: 20110831
  Serious: Yes (Death, Hospitalization)
  Sender: FDA-Public Use
  Company Number: US-ABBOTT-11P-163-0701120-00

PATIENT
  Sex: Male
  Weight: 115.77 kg

DRUGS (4)
  1. LIPITOR [Concomitant]
     Indication: BLOOD CHOLESTEROL INCREASED
     Dates: start: 20100101, end: 20101101
  2. HUMIRA [Suspect]
     Indication: CROHN'S DISEASE
     Route: 058
     Dates: start: 20071201, end: 20110101
  3. CELEBREX [Concomitant]
     Indication: BACK PAIN
  4. LIPITOR [Concomitant]
     Dates: end: 20101101

REACTIONS (9)
  - PALPITATIONS [None]
  - HYPERHIDROSIS [None]
  - ARTERIOSCLEROSIS [None]
  - CORONARY ARTERY DISEASE [None]
  - PALLOR [None]
  - ARRHYTHMIA [None]
  - MYOCARDIAL INFARCTION [None]
  - CORONARY ARTERY STENOSIS [None]
  - CARDIOMEGALY [None]
